FAERS Safety Report 8473846-0 (Version None)
Quarter: 2012Q2

REPORT INFORMATION
  Report Type: 
  Country: None (occurrence: None)
  Receive Date: 20120628
  Receipt Date: 20120112
  Transmission Date: 20120825
  Serious: Yes (Other)
  Sender: FDA-Public Use
  Company Number: US-MYLANLABS-2011S1026136

PATIENT
  Age: 23 Year
  Sex: Male
  Weight: 87.09 kg

DRUGS (11)
  1. CLOZAPINE [Suspect]
     Indication: PSYCHOTIC DISORDER
     Route: 048
     Dates: end: 20110101
  2. PRILOSEC [Concomitant]
  3. COGENTIN [Concomitant]
  4. TEGRETOL [Concomitant]
  5. LOPRESSOR [Concomitant]
  6. HALDOL [Concomitant]
  7. CELEXA [Concomitant]
  8. MULTIVITAMIN [Concomitant]
  9. CLOZAPINE [Suspect]
     Route: 048
     Dates: start: 20111024, end: 20111214
  10. FIBERLAX [Concomitant]
  11. LITHOBID [Concomitant]

REACTIONS (1)
  - GRANULOCYTOPENIA [None]
